FAERS Safety Report 6259241-3 (Version None)
Quarter: 2009Q3

REPORT INFORMATION
  Report Type: 
  Country: None (occurrence: None)
  Receive Date: 20090702
  Receipt Date: 20090619
  Transmission Date: 20100115
  Serious: Yes (Death)
  Sender: FDA-Public Use
  Company Number: ADE# 09-257DPR

PATIENT
  Age: 52 Year
  Sex: Male

DRUGS (1)
  1. DIGOXIN [Suspect]
     Indication: HEART RATE IRREGULAR
     Dosage: ONE TABLET DAILY
     Dates: start: 20080901

REACTIONS (4)
  - COMMUNICATION DISORDER [None]
  - FEELING ABNORMAL [None]
  - HYPERSOMNIA [None]
  - MYOCARDIAL INFARCTION [None]
